FAERS Safety Report 13408707 (Version 1)
Quarter: 2017Q2

REPORT INFORMATION
  Report Type: Spontaneous
  Country: US (occurrence: US)
  Receive Date: 20170406
  Receipt Date: 20170406
  Transmission Date: 20170830
  Serious: Yes (Life-Threatening)
  Sender: FDA-Public Use
  Company Number: None

PATIENT
  Age: 23 Year
  Sex: Male
  Weight: 89.7 kg

DRUGS (1)
  1. ENOXAPARIN [Suspect]
     Active Substance: ENOXAPARIN
     Indication: THROMBOSIS PROPHYLAXIS
     Route: 058
     Dates: start: 20170404

REACTIONS (6)
  - Erythema [None]
  - Somnolence [None]
  - Apnoea [None]
  - Pruritus [None]
  - Burning sensation [None]
  - Eye swelling [None]

NARRATIVE: CASE EVENT DATE: 20170404
